FAERS Safety Report 17815913 (Version 2)
Quarter: 2020Q3

REPORT INFORMATION
  Report Type: Other
  Country: US (occurrence: US)
  Receive Date: 20200522
  Receipt Date: 20200814
  Transmission Date: 20201102
  Serious: Yes (Death, Congenital Anomaly)
  Sender: FDA-Public Use
  Company Number: US-AMAG PHARMACEUTICALS, INC.-AMAG202001832

PATIENT

DRUGS (1)
  1. MAKENA [Suspect]
     Active Substance: HYDROXYPROGESTERONE CAPROATE
     Indication: FOETAL EXPOSURE DURING PREGNANCY
     Dosage: 250 MG/ML WEEKLY
     Route: 064
     Dates: end: 20200508

REACTIONS (1)
  - 1p36 deletion syndrome [Not Recovered/Not Resolved]

NARRATIVE: CASE EVENT DATE: 202005
